FAERS Safety Report 9308616 (Version 1)
Quarter: 2013Q2

REPORT INFORMATION
  Report Type: Spontaneous
  Country: US (occurrence: US)
  Receive Date: 20130524
  Receipt Date: 20130524
  Transmission Date: 20140414
  Serious: Yes (Other)
  Sender: FDA-Public Use
  Company Number: US-BAYER-2013-062545

PATIENT
  Age: 67 Year
  Sex: Male

DRUGS (9)
  1. STIVARGA [Suspect]
     Indication: COLORECTAL CANCER METASTATIC
     Dosage: DAILY DOSE 160 MG
     Route: 048
  2. METOPROLOL [Concomitant]
  3. LEVOTHYROXINE [Concomitant]
  4. POTASSIUM [Concomitant]
  5. LOVASTATIN [Concomitant]
  6. GABAPENTIN [Concomitant]
  7. AMLODIPINE [Concomitant]
  8. ASA [Concomitant]
  9. CITALOPRAM [Concomitant]

REACTIONS (1)
  - Haemarthrosis [None]
